FAERS Safety Report 7451420-2 (Version None)
Quarter: 2011Q2

REPORT INFORMATION
  Report Type: 
  Country: None (occurrence: None)
  Receive Date: 20110502
  Receipt Date: 20110422
  Transmission Date: 20111010
  Serious: Yes (Other)
  Sender: FDA-Public Use
  Company Number: CN-ASTRAZENECA-2011SE23087

PATIENT
  Age: 69 Year
  Sex: Female

DRUGS (7)
  1. ASPIRIN [Concomitant]
  2. CLOPIDOGREL [Concomitant]
  3. OMEPRAZOLE [Concomitant]
  4. QUETIAPINE [Suspect]
     Indication: DEPRESSION
     Route: 048
  5. CITALOPRAM [Interacting]
     Indication: DEPRESSION
  6. CITALOPRAM [Interacting]
  7. BISOPROLOL FUMARATE [Concomitant]

REACTIONS (3)
  - DYSURIA [None]
  - DRUG INTERACTION [None]
  - URINARY RETENTION [None]
